FAERS Safety Report 10088916 (Version 2)
Quarter: 2014Q2

REPORT INFORMATION
  Report Type: Spontaneous
  Country: FR (occurrence: FR)
  Receive Date: 20140421
  Receipt Date: 20140617
  Transmission Date: 20141212
  Serious: Yes (Life-Threatening, Hospitalization)
  Sender: FDA-Public Use
  Company Number: FR-JNJFOC-20140411035

PATIENT
  Age: 89 Year
  Sex: Female

DRUGS (6)
  1. XARELTO [Suspect]
     Indication: VENOUS THROMBOSIS
     Route: 048
  2. LASILIX [Concomitant]
     Route: 065
  3. ZOPICLONE [Concomitant]
     Route: 065
  4. BROMAZEPAM [Concomitant]
     Route: 065
  5. NEBILOX [Concomitant]
     Route: 065
  6. ALLOPURINOL [Concomitant]
     Route: 065

REACTIONS (2)
  - Anaemia [Not Recovered/Not Resolved]
  - Overdose [Recovered/Resolved]
